FAERS Safety Report 23400985 (Version 5)
Quarter: 2024Q1

REPORT INFORMATION
  Report Type: Spontaneous
  Country: US (occurrence: US)
  Receive Date: 20240115
  Receipt Date: 20240306
  Transmission Date: 20240410
  Serious: Yes (Other)
  Sender: FDA-Public Use
  Company Number: US-Vifor (International) Inc.-VIT-2024-00301

PATIENT
  Age: 64 Year
  Sex: Female
  Weight: 110.7 kg

DRUGS (19)
  1. MIRCERA [Suspect]
     Active Substance: METHOXY POLYETHYLENE GLYCOL-EPOETIN BETA
     Indication: Nephrogenic anaemia
     Dosage: BATCH: UNAVAILABLE
     Route: 040
     Dates: start: 20211108
  2. MIRCERA [Suspect]
     Active Substance: METHOXY POLYETHYLENE GLYCOL-EPOETIN BETA
     Dosage: BATCH: UNAVAILABLE
     Route: 040
     Dates: start: 20221003
  3. MIRCERA [Suspect]
     Active Substance: METHOXY POLYETHYLENE GLYCOL-EPOETIN BETA
     Dosage: IVP; 75X3; BATCH: UNAVAILABLE
     Route: 040
     Dates: start: 20231101, end: 20231224
  4. VELTASSA [Suspect]
     Active Substance: PATIROMER
     Indication: Hyperkalaemia
     Route: 048
     Dates: start: 202308
  5. VELTASSA [Suspect]
     Active Substance: PATIROMER
     Dosage: TAKE 1 PACKET BY MOUTH EVERY MORNING ON NON-DIALYSIS DAYS
     Route: 048
     Dates: start: 20230924
  6. AMLODIPINE [Concomitant]
     Active Substance: AMLODIPINE BESYLATE
     Dosage: TAKE 1 TABLET BY MOUTH ONCE A DAY PRE HD.
     Route: 048
  7. ATORVASTATIN [Concomitant]
     Active Substance: ATORVASTATIN
     Dosage: TAKE 1 TABLET BY MOUTH ONCE A DAY.
     Route: 048
  8. DOXYCYCLINE HYCLATE [Concomitant]
     Active Substance: DOXYCYCLINE HYCLATE
     Dosage: TAKE 1 CAPSULE BY MOUTH TWICE A DAY.
     Route: 048
  9. ELIQUIS [Concomitant]
     Active Substance: APIXABAN
     Dosage: TAKE 1 TABLET BY MOUTH TWICE A DAY.
     Route: 048
  10. FLONASE ALLERGY RELIEF [Concomitant]
     Active Substance: FLUTICASONE PROPIONATE
     Dosage: 50 MCG/ACTUATION NASAL SPRAY,SUSPENSION; SPRAY 1 SPRAY INTO BOTH NOSTRILS ONCE A DAY.
     Route: 045
  11. GABAPENTIN [Concomitant]
     Active Substance: GABAPENTIN
     Dosage: TAKE 2 CAPSULE BY MOUTH AT BEDTIME.
     Route: 048
  12. LISINOPRIL [Concomitant]
     Active Substance: LISINOPRIL
     Dosage: TAKE 1 TABLET BY MOUTH ONCE A DAY ON HD TAKE PRE TREATMENT
     Route: 048
  13. NEPHRO VITE RX [Concomitant]
     Active Substance: ASCORBIC ACID\BIOTIN\CALCIUM PANTOTHENATE\CYANOCOBALAMIN\FOLIC ACID\NIACINAMIDE\PYRIDOXINE HYDROCHLO
     Dosage: TAKE 1 TABLET BY MOUTH ONCE A DAY.
     Route: 048
  14. RENVELA [Concomitant]
     Active Substance: SEVELAMER CARBONATE
     Dosage: TAKE 5 TABLET BY MOUTH THREE TIMES A DAY WITH MEALS 1 WITH SNACKS.
     Route: 048
  15. SACCHAROMYCES CEREVISIAE [Concomitant]
     Active Substance: SACCHAROMYCES CEREVISIAE
     Dosage: TAKE 1 CAPSULE BY MOUTH TWICE A DAY.
     Route: 048
  16. SERTRALINE [Concomitant]
     Active Substance: SERTRALINE HYDROCHLORIDE
     Dosage: TAKE 1 TABLET BY MOUTH ONCE A DAY.
     Route: 048
  17. TENORMIN [Concomitant]
     Active Substance: ATENOLOL
     Dosage: TAKE 1 TABLET BY MOUTH ONCE A DAY.
     Route: 048
  18. TYLENOL EXTRA STRENGTH [Concomitant]
     Active Substance: ACETAMINOPHEN
     Indication: Pain assessment
     Dosage: TAKE 2 TABLET BY MOUTH AS DIRECTED PRN FOR PAIN.
     Route: 048
  19. VITAMIN D3 [Concomitant]
     Active Substance: CHOLECALCIFEROL
     Dosage: TAKE 1 TABLET BY MOUTH ONCE A DAY.
     Route: 048

REACTIONS (9)
  - Drug hypersensitivity [Recovered/Resolved]
  - Chest pain [Recovered/Resolved]
  - Erythema [Recovered/Resolved]
  - Dyskinesia [Recovered/Resolved]
  - Hypotension [Recovered/Resolved]
  - Unresponsive to stimuli [Recovered/Resolved]
  - Foaming at mouth [Recovered/Resolved]
  - Loss of consciousness [Recovered/Resolved]
  - Off label use [Unknown]

NARRATIVE: CASE EVENT DATE: 20230924
